FAERS Safety Report 15356803 (Version 1)
Quarter: 2018Q3

REPORT INFORMATION
  Report Type: Spontaneous
  Country: US (occurrence: US)
  Receive Date: 20180830
  Receipt Date: 20180830
  Transmission Date: 20181010
  Serious: No
  Sender: FDA-Public Use
  Company Number: None

PATIENT
  Age: 14 Year
  Sex: Female

DRUGS (1)
  1. ORKAMBI [Suspect]
     Active Substance: IVACAFTOR\LUMACAFTOR
     Route: 048
     Dates: start: 20171115, end: 20180830

REACTIONS (2)
  - Chest discomfort [None]
  - Therapy non-responder [None]

NARRATIVE: CASE EVENT DATE: 20180829
